FAERS Safety Report 23742815 (Version 1)
Quarter: 2024Q2

REPORT INFORMATION
  Report Type: Spontaneous
  Country: CN (occurrence: CN)
  Receive Date: 20240415
  Receipt Date: 20240415
  Transmission Date: 20240716
  Serious: Yes (Life-Threatening, Other)
  Sender: FDA-Public Use
  Company Number: CN-FreseniusKabi-FK202405984

PATIENT
  Age: 46 Year
  Sex: Male

DRUGS (2)
  1. PROPOFOL [Suspect]
     Active Substance: PROPOFOL
     Indication: Alcohol withdrawal syndrome
     Dosage: DOSAGE: 3.5 ML/H?FORM OF ADMIN: INJECTION
     Route: 042
     Dates: start: 202009, end: 202009
  2. MIDAZOLAM [Suspect]
     Active Substance: MIDAZOLAM
     Indication: Alcohol withdrawal syndrome
     Dosage: 3.6 ML/H?INJECTION
     Route: 042

REACTIONS (2)
  - Dyspnoea [Recovered/Resolved]
  - Seizure [Recovered/Resolved]

NARRATIVE: CASE EVENT DATE: 20200918
